FAERS Safety Report 20016016 (Version 1)
Quarter: 2021Q4

REPORT INFORMATION
  Report Type: Spontaneous
  Country: US (occurrence: None)
  Receive Date: 20211102
  Receipt Date: 20211102
  Transmission Date: 20220303
  Serious: No
  Sender: FDA-Public Use
  Company Number: None

PATIENT
  Age: 86 Year
  Sex: Male
  Weight: 71.7 kg

DRUGS (1)
  1. CASIRIVIMAB\IMDEVIMAB [Suspect]
     Active Substance: CASIRIVIMAB\IMDEVIMAB
     Dosage: FREQUENCY : ONCE;?
     Route: 042
     Dates: start: 20210815, end: 20210815

REACTIONS (4)
  - Acute respiratory failure [None]
  - Pleural effusion [None]
  - Neoplasm malignant [None]
  - COVID-19 pneumonia [None]

NARRATIVE: CASE EVENT DATE: 20210815
